FAERS Safety Report 7645211-7 (Version None)
Quarter: 2011Q3

REPORT INFORMATION
  Report Type: 
  Country: None (occurrence: None)
  Receive Date: 20110729
  Receipt Date: 20110720
  Transmission Date: 20111222
  Serious: Yes (Hospitalization)
  Sender: FDA-Public Use
  Company Number: FR-BRISTOL-MYERS SQUIBB COMPANY-15918972

PATIENT
  Age: 68 Year
  Sex: Male

DRUGS (5)
  1. ACTONEL [Concomitant]
     Dosage: 10.7143 MG
     Route: 048
  2. ACETAMINOPHEN AND TRAMADOL HCL [Concomitant]
     Indication: PAIN
     Dosage: 1DF: SIX INTAKES
     Route: 048
  3. CALPEROS [Concomitant]
     Dosage: 1DF: 2INTAKES
     Route: 048
  4. REYATAZ [Suspect]
     Dates: start: 20090301, end: 20110328
  5. TRUVADA [Concomitant]
     Dosage: 1DF: ONE INTAKE
     Route: 048
     Dates: start: 20090101

REACTIONS (3)
  - POLYNEUROPATHY [None]
  - LUMBAR VERTEBRAL FRACTURE [None]
  - CONDITION AGGRAVATED [None]
